FAERS Safety Report 12527720 (Version 1)
Quarter: 2016Q3

REPORT INFORMATION
  Report Type: Report from Study
  Country: NL (occurrence: NL)
  Receive Date: 20160705
  Receipt Date: 20160705
  Transmission Date: 20161109
  Serious: Yes (Death, Other)
  Sender: FDA-Public Use
  Company Number: NL-009507513-2003-108969-NL

PATIENT

DRUGS (5)
  1. ORGARAN [Suspect]
     Active Substance: DANAPAROID SODIUM
     Indication: EMBOLISM VENOUS
     Dosage: DOSE TEXT: LOW-DOSE DANAPAROID (N=65), AS USED: 1250 ANTI_XA
     Route: 040
  2. ORGARAN [Suspect]
     Active Substance: DANAPAROID SODIUM
     Dosage: DOSE TEXT: LOW-DOSE DANAPAROID (N=65), AS USED: 1250 ANTI_XA, DAILY DOSE: 2500 ANTI_XA
     Route: 058
  3. ORGARAN [Suspect]
     Active Substance: DANAPAROID SODIUM
     Dosage: DOSE TEXT: HIGH-DOSE DANAPAROID (N=63), AS USED: 2000 ANTI_XA, DAILY DOSE: 4000 ANTI_XA
     Route: 058
  4. ACENOCOUMAROL [Concomitant]
     Active Substance: ACENOCOUMAROL
     Indication: THROMBOSIS PROPHYLAXIS
     Dosage: UNK
  5. ORGARAN [Suspect]
     Active Substance: DANAPAROID SODIUM
     Dosage: DOSE TEXT: HIGH-DOSE DANAPAROID (N=63), AS USED: 2000 ANTI_XA
     Route: 040

REACTIONS (4)
  - Ventilation/perfusion scan abnormal [Unknown]
  - Embolism venous [Unknown]
  - Haemorrhage [Unknown]
  - Death [Fatal]
